FAERS Safety Report 5707067-9 (Version None)
Quarter: 2008Q2

REPORT INFORMATION
  Report Type: 
  Country: None (occurrence: None)
  Receive Date: 20080416
  Receipt Date: 20080415
  Transmission Date: 20081010
  Serious: Yes (Other)
  Sender: FDA-Public Use
  Company Number: B0516679A

PATIENT
  Age: 71 Year
  Sex: Male

DRUGS (1)
  1. ZOVIRAX [Suspect]
     Indication: ENCEPHALITIS HERPES
     Route: 042

REACTIONS (2)
  - ANURIA [None]
  - RENAL FAILURE ACUTE [None]
